FAERS Safety Report 8496817-7 (Version None)
Quarter: 2012Q3

REPORT INFORMATION
  Report Type: 
  Country: None (occurrence: None)
  Receive Date: 20120709
  Receipt Date: 20120704
  Transmission Date: 20120928
  Serious: Yes (Other)
  Sender: FDA-Public Use
  Company Number: SE-PFIZER INC-2012136710

PATIENT
  Age: 56 Year
  Sex: Female

DRUGS (6)
  1. CHROMIUM [Concomitant]
     Dosage: UNK
  2. CALCIUM [Concomitant]
     Dosage: UNK
  3. PAROXETINE [Concomitant]
     Indication: POST-TRAUMATIC STRESS DISORDER
     Dosage: UNK
  4. UROCIT-K [Concomitant]
     Indication: RENAL LITHIASIS PROPHYLAXIS
     Dosage: UNK
  5. MAGNESIUM [Concomitant]
     Dosage: UNK
  6. ZIPRASIDONE HYDROCHLORIDE [Suspect]
     Indication: BIPOLAR DISORDER
     Dosage: 20 MG, 3X/DAY
     Dates: start: 20010101

REACTIONS (1)
  - NEPHROLITHIASIS [None]
